FAERS Safety Report 20962731 (Version 1)
Quarter: 2022Q2

REPORT INFORMATION
  Report Type: Spontaneous
  Country: FR (occurrence: FR)
  Receive Date: 20220615
  Receipt Date: 20220615
  Transmission Date: 20220720
  Serious: Yes (Other)
  Sender: FDA-Public Use
  Company Number: FR-SAMSUNG BIOEPIS-SB-2022-14428

PATIENT
  Age: 34 Year
  Sex: Male

DRUGS (5)
  1. INFLIXIMAB [Suspect]
     Active Substance: INFLIXIMAB
     Indication: Immune reconstitution inflammatory syndrome associated tuberculosis
     Dosage: D1, D15
     Route: 042
  2. INFLIXIMAB [Suspect]
     Active Substance: INFLIXIMAB
     Route: 042
  3. MARAVIROC [Concomitant]
     Active Substance: MARAVIROC
     Indication: Immune reconstitution inflammatory syndrome associated tuberculosis
     Dosage: UNKNOWN
     Route: 065
  4. LOPINAVIR [Concomitant]
     Active Substance: LOPINAVIR
     Indication: Immune reconstitution inflammatory syndrome associated tuberculosis
     Dosage: UNKNOWN
     Route: 065
  5. LENALIDOMIDE [Concomitant]
     Active Substance: LENALIDOMIDE
     Indication: Immune reconstitution inflammatory syndrome associated tuberculosis
     Dosage: UNKNOWN
     Route: 065

REACTIONS (2)
  - Immune reconstitution inflammatory syndrome associated tuberculosis [Recovered/Resolved]
  - Off label use [Unknown]
